FAERS Safety Report 5747112-8 (Version None)
Quarter: 2008Q2

REPORT INFORMATION
  Report Type: 
  Country: None (occurrence: None)
  Receive Date: 20080522
  Receipt Date: 20080512
  Transmission Date: 20081010
  Serious: Yes (Hospitalization)
  Sender: FDA-Public Use
  Company Number: US-AMGEN-KDL280981

PATIENT
  Sex: Female
  Weight: 3 kg

DRUGS (4)
  1. ENBREL [Suspect]
     Indication: RHEUMATOID ARTHRITIS
     Route: 064
     Dates: start: 20030101, end: 20070101
  2. NAPROSYN [Concomitant]
  3. FLINTSTONES MULTIPLE VITAMINS [Concomitant]
  4. PITOCIN [Concomitant]

REACTIONS (3)
  - GASTROOESOPHAGEAL REFLUX DISEASE [None]
  - GASTROSCHISIS [None]
  - INFANTILE COLIC [None]
